FAERS Safety Report 25097099 (Version 1)
Quarter: 2025Q1

REPORT INFORMATION
  Report Type: Report from Study
  Country: CA (occurrence: CA)
  Receive Date: 20250319
  Receipt Date: 20250319
  Transmission Date: 20250408
  Serious: Yes (Other)
  Sender: ABBVIE
  Company Number: CA-ABBVIE-6173339

PATIENT
  Sex: Male

DRUGS (3)
  1. RINVOQ [Suspect]
     Active Substance: UPADACITINIB
     Indication: Crohn^s disease
     Route: 048
  2. PREDNISONE [Concomitant]
     Active Substance: PREDNISONE
     Indication: Product used for unknown indication
  3. Varicella zoster [Concomitant]
     Indication: Product used for unknown indication

REACTIONS (4)
  - Gastrointestinal obstruction [Unknown]
  - Vomiting [Unknown]
  - Headache [Unknown]
  - Pruritus [Unknown]
